FAERS Safety Report 17306423 (Version 1)
Quarter: 2020Q1

REPORT INFORMATION
  Report Type: Spontaneous
  Country: IT (occurrence: IT)
  Receive Date: 20200123
  Receipt Date: 20200123
  Transmission Date: 20200409
  Serious: Yes (Death, Hospitalization)
  Sender: FDA-Public Use
  Company Number: IT-UNICHEM PHARMACEUTICALS (USA) INC-UCM202001-000104

PATIENT
  Age: 40 Year
  Sex: Male

DRUGS (21)
  1. CLOZAPINE. [Suspect]
     Active Substance: CLOZAPINE
     Indication: MANIA
     Route: 048
  2. CLOZAPINE. [Suspect]
     Active Substance: CLOZAPINE
     Dosage: DAY 03 AT 8:00 AM, 1:00 PM AND 8:00 PM
     Route: 048
  3. HALOPERIDOL. [Suspect]
     Active Substance: HALOPERIDOL
     Indication: AGITATION
     Dosage: DAY 1 AT 1:00 PM
     Route: 042
  4. CHLORPHENIRAMINE. [Concomitant]
     Active Substance: CHLORPHENIRAMINE
     Indication: AGITATION
     Dosage: DAY 01 AT 8:00 PM
     Route: 042
  5. DIVALPROEX SODIUM. [Suspect]
     Active Substance: DIVALPROEX SODIUM
     Indication: PSYCHOMOTOR HYPERACTIVITY
     Dosage: DAY 01 AND DAY 2  AT NIGHT
     Route: 048
  6. CLOZAPINE. [Suspect]
     Active Substance: CLOZAPINE
     Dosage: DAY 4 AT 8:00 AM 200 MG, 1:00 PM 100 MG AND 8:00 PM 100 MG
     Route: 048
  7. PROMAZINE [Suspect]
     Active Substance: PROMAZINE
     Indication: AGITATION
     Dosage: DAY 03 AND 04 AT NIGHT
     Route: 048
  8. PROMAZINE [Suspect]
     Active Substance: PROMAZINE
     Dosage: DAY 05 AT 1:00 PM AND AT NIGHT
     Route: 048
  9. DELORAZEPAM [Concomitant]
     Active Substance: DELORAZEPAM
     Dosage: DAY 02 AT NIGHT
     Route: 030
  10. DIVALPROEX SODIUM. [Suspect]
     Active Substance: DIVALPROEX SODIUM
     Dosage: DAY 03, 04 AND 05  AT 8:00 AM, 1:00 PM AND 8:00 PM
     Route: 048
  11. CLOZAPINE. [Suspect]
     Active Substance: CLOZAPINE
     Indication: BIPOLAR I DISORDER
     Dosage: DAY 2 AT 8:00 PM
     Route: 048
  12. HALOPERIDOL. [Suspect]
     Active Substance: HALOPERIDOL
     Dosage: DAY 4 AT 8:00 PM
     Route: 048
  13. CHLORPROMAZINE. [Concomitant]
     Active Substance: CHLORPROMAZINE
     Dosage: DAY 02 AT NIGHT
     Route: 030
  14. CLOTHIAPINE [Concomitant]
     Active Substance: CLOTHIAPINE
     Dosage: DAY 03 AT 8:00 AM, 1:00 PM AND 8:00 PM
     Route: 030
  15. HALOPERIDOL. [Suspect]
     Active Substance: HALOPERIDOL
     Dosage: DAY 5 AT 8:00 AM AND 8:00 PM
     Route: 048
  16. CHLORPROMAZINE. [Concomitant]
     Active Substance: CHLORPROMAZINE
     Indication: AGITATION
     Dosage: DAY 01 AT 8:00 PM
     Route: 042
  17. MIDAZOLAM HYDROCHLORIDE. [Concomitant]
     Active Substance: MIDAZOLAM HYDROCHLORIDE
     Indication: AGITATION
     Dosage: DAY 01 MIDAZOLAM 15 MG WAS GIVEN AT 1:00 PM AND AFTER 9 HOUR 5 MG WAS GIVEN
     Route: 042
  18. DELORAZEPAM [Concomitant]
     Active Substance: DELORAZEPAM
     Indication: AGITATION
     Dosage: DAY 01 AT 8:00 PM
     Route: 042
  19. DELORAZEPAM [Concomitant]
     Active Substance: DELORAZEPAM
     Dosage: DAY 03, 04 AND 05 AT NIGHT
     Route: 048
  20. CLOZAPINE. [Suspect]
     Active Substance: CLOZAPINE
     Route: 048
  21. CLOTHIAPINE [Concomitant]
     Active Substance: CLOTHIAPINE
     Indication: AGITATION
     Dosage: DAY 01 AT NIGHT AND DAY 02 AT 8:00 PM
     Route: 030

REACTIONS (6)
  - Drug interaction [Fatal]
  - Sudden death [Fatal]
  - Head injury [Fatal]
  - Fall [Fatal]
  - Toxicity to various agents [Fatal]
  - Cardiac arrest [Fatal]
